FAERS Safety Report 6779368-7 (Version None)
Quarter: 2010Q2

REPORT INFORMATION
  Report Type: 
  Country: None (occurrence: None)
  Receive Date: 20100618
  Receipt Date: 20100608
  Transmission Date: 20101027
  Serious: Yes (Other)
  Sender: FDA-Public Use
  Company Number: PHHY2010JP33189

PATIENT
  Sex: Male
  Weight: 44 kg

DRUGS (1)
  1. DIOVAN HCT [Suspect]
     Indication: HYPERTENSION
     Dosage: 1 DF, QD
     Route: 048
     Dates: start: 20090331, end: 20100426

REACTIONS (3)
  - BLOOD UREA INCREASED [None]
  - HYPOCHLORAEMIA [None]
  - HYPONATRAEMIA [None]
